FAERS Safety Report 21397913 (Version 8)
Quarter: 2023Q2

REPORT INFORMATION
  Report Type: Report from Study
  Country: US (occurrence: US)
  Receive Date: 20220930
  Receipt Date: 20230406
  Transmission Date: 20230721
  Serious: No
  Sender: FDA-Public Use
  Company Number: US-NOVARTISTESTPH-NVSC2022US221472

PATIENT
  Sex: Female

DRUGS (2)
  1. KESIMPTA [Suspect]
     Active Substance: OFATUMUMAB
     Indication: Multiple sclerosis
     Dosage: 20 MG
     Route: 058
     Dates: start: 20220921
  2. KESIMPTA [Suspect]
     Active Substance: OFATUMUMAB
     Dosage: 20 MG (2ND LOADING DOSE)
     Route: 058
     Dates: start: 20220928

REACTIONS (7)
  - Influenza like illness [Unknown]
  - Hypoaesthesia [Unknown]
  - Injection site rash [Unknown]
  - Injection site swelling [Unknown]
  - Insomnia [Unknown]
  - Nausea [Unknown]
  - Headache [Unknown]
